FAERS Safety Report 7638318-1 (Version None)
Quarter: 2011Q3

REPORT INFORMATION
  Report Type: 
  Country: None (occurrence: None)
  Receive Date: 20110727
  Receipt Date: 20110727
  Transmission Date: 20111222
  Serious: No
  Sender: FDA-Public Use
  Company Number: None

PATIENT
  Age: 49 Year
  Sex: Female
  Weight: 102.51 kg

DRUGS (1)
  1. BUPROPION HYDROCHLORIDE [Suspect]
     Indication: DEPRESSION
     Dosage: 1
     Route: 048
     Dates: start: 20110721, end: 20110723

REACTIONS (6)
  - PAROSMIA [None]
  - DYSGEUSIA [None]
  - ANXIETY [None]
  - RETCHING [None]
  - TONGUE BLISTERING [None]
  - PANIC ATTACK [None]
